FAERS Safety Report 8011290-0 (Version None)
Quarter: 2011Q4

REPORT INFORMATION
  Report Type: 
  Country: None (occurrence: None)
  Receive Date: 20111227
  Receipt Date: 20111227
  Transmission Date: 20120403
  Serious: Yes (Other)
  Sender: FDA-Public Use
  Company Number: None

PATIENT
  Age: 32 Year
  Sex: Male
  Weight: 108.86 kg

DRUGS (1)
  1. LARIAM [Suspect]
     Indication: MALARIA PROPHYLAXIS
     Dosage: ONE PILL
     Route: 048

REACTIONS (19)
  - DEPRESSION [None]
  - BALANCE DISORDER [None]
  - ANXIETY [None]
  - MEMORY IMPAIRMENT [None]
  - SLEEP DISORDER [None]
  - IRRITABILITY [None]
  - AGORAPHOBIA [None]
  - HEART RATE INCREASED [None]
  - NIGHTMARE [None]
  - MOOD SWINGS [None]
  - TINNITUS [None]
  - DISTURBANCE IN ATTENTION [None]
  - DIZZINESS [None]
  - MULTIPLE ALLERGIES [None]
  - HYPERHIDROSIS [None]
  - MIGRAINE [None]
  - POST-TRAUMATIC STRESS DISORDER [None]
  - NECK PAIN [None]
  - ARTHRALGIA [None]
